FAERS Safety Report 7586775-1 (Version None)
Quarter: 2011Q3

REPORT INFORMATION
  Report Type: 
  Country: None (occurrence: None)
  Receive Date: 20110701
  Receipt Date: 20110616
  Transmission Date: 20111222
  Serious: No
  Sender: FDA-Public Use
  Company Number: US-B.I. PHARMACEUTICALS,INC./RIDGEFIELD-2011-BP-13651BP

PATIENT
  Age: 87 Year
  Sex: Male
  Weight: 68.95 kg

DRUGS (11)
  1. POTASSIUM CHLORIDE [Concomitant]
     Indication: CARDIAC FAILURE CONGESTIVE
     Dosage: 20 MEQ
     Route: 048
     Dates: start: 20100101
  2. PRADAXA [Suspect]
     Dosage: 150 MG
     Dates: start: 20110516, end: 20110521
  3. EXELON [Concomitant]
     Indication: DEPRESSION
     Route: 061
     Dates: start: 20090101
  4. AVODART [Concomitant]
     Indication: PROSTATIC DISORDER
     Dosage: 0.5 MG
     Route: 048
     Dates: start: 20090101
  5. RANITIDINE [Concomitant]
     Indication: GASTROOESOPHAGEAL REFLUX DISEASE
     Dosage: 300 MG
     Route: 048
     Dates: start: 20090101
  6. LASIX [Concomitant]
     Indication: CARDIAC FAILURE CONGESTIVE
     Dosage: 50 MG
     Route: 048
     Dates: start: 20090101
  7. HYDRALAZINE HCL [Concomitant]
     Indication: CARDIAC FAILURE CONGESTIVE
     Dosage: 20 MG
     Route: 048
     Dates: start: 20110510, end: 20110516
  8. PRADAXA [Suspect]
     Indication: ATRIAL FIBRILLATION
     Dosage: 300 MG
     Route: 048
     Dates: start: 20110101, end: 20110516
  9. SIMVASTATIN [Concomitant]
     Indication: BLOOD CHOLESTEROL
     Dosage: 30 MG
     Route: 048
     Dates: start: 20110501
  10. SYNTHROID [Concomitant]
     Indication: HYPOTHYROIDISM
     Dosage: 75 MEQ
     Route: 048
     Dates: start: 20090101
  11. BUPROPION HCL [Concomitant]
     Indication: DEPRESSION
     Dosage: 150 MG
     Route: 048
     Dates: start: 20100101

REACTIONS (4)
  - CONTUSION [None]
  - THROMBIN TIME PROLONGED [None]
  - OEDEMA PERIPHERAL [None]
  - HAEMORRHAGE [None]
